FAERS Safety Report 6099554-1 (Version None)
Quarter: 2009Q1

REPORT INFORMATION
  Report Type: 
  Country: None (occurrence: None)
  Receive Date: 20090226
  Receipt Date: 20090211
  Transmission Date: 20090719
  Serious: Yes (Other)
  Sender: FDA-Public Use
  Company Number: 2009S1002541

PATIENT
  Sex: Female

DRUGS (2)
  1. ROPINIROLE HYDROCHLORIDE [Suspect]
     Indication: RESTLESS LEGS SYNDROME
     Dosage: 0.5 MG; ORAL
     Route: 048
     Dates: start: 20090101
  2. ROXITHROMYCIN (ROXITHROMYCIN) (300 MG) [Suspect]
     Indication: BRONCHITIS
     Dosage: 150 MG;TWICE A DAY;
     Dates: start: 20090209, end: 20090211

REACTIONS (4)
  - DRUG INEFFECTIVE [None]
  - DRUG INTERACTION [None]
  - NIGHTMARE [None]
  - POOR QUALITY SLEEP [None]
